FAERS Safety Report 9034666 (Version 1)
Quarter: 2013Q1

REPORT INFORMATION
  Report Type: Spontaneous
  Country: US (occurrence: None)
  Receive Date: 20130111
  Receipt Date: 20130111
  Transmission Date: 20140127
  Serious: Yes (Other)
  Sender: FDA-Public Use
  Company Number: TPA2012A09939

PATIENT
  Age: 67 Year
  Sex: Male
  Weight: 99.79 kg

DRUGS (1)
  1. ACTOPLUS MET (PIOGLITAZONE HYDROCHLORIDE,METFORMIN HYDROCHLORIDE) [Suspect]
     Indication: TYPE 2 DIABETES MELLITUS
     Dates: start: 20090810, end: 20110601

REACTIONS (1)
  - Bladder cancer [None]
